FAERS Safety Report 9436783 (Version 1)
Quarter: 2013Q3

REPORT INFORMATION
  Report Type: Spontaneous
  Country: DK (occurrence: DK)
  Receive Date: 20130802
  Receipt Date: 20130802
  Transmission Date: 20140515
  Serious: Yes (Other)
  Sender: FDA-Public Use
  Company Number: DK-AMGEN-DNKSP2013053530

PATIENT
  Age: 62 Year
  Sex: 0

DRUGS (2)
  1. PROLIA [Suspect]
     Indication: OSTEOPOROSIS
     Dosage: 60 MG/ML, UNK
     Route: 065
     Dates: start: 20100615
  2. ALENDRONATE [Concomitant]
     Indication: OSTEOPOROSIS
     Dosage: 70 MG, QWK
     Dates: start: 20090115

REACTIONS (1)
  - Osteonecrosis of jaw [Recovered/Resolved]
